FAERS Safety Report 25598097 (Version 1)
Quarter: 2025Q3

REPORT INFORMATION
  Report Type: Spontaneous
  Country: US (occurrence: US)
  Receive Date: 20250723
  Receipt Date: 20250723
  Transmission Date: 20251021
  Serious: Yes (Hospitalization, Other)
  Sender: AMGEN
  Company Number: US-AMGEN-USASP2025140922

PATIENT
  Age: 76 Year
  Sex: Male

DRUGS (3)
  1. PREDNISONE [Suspect]
     Active Substance: PREDNISONE
     Indication: Interstitial lung disease
     Dosage: 10 MILLIGRAM, QD
     Route: 065
  2. PREDNISONE [Suspect]
     Active Substance: PREDNISONE
     Dosage: 40 MILLIGRAM, QD
     Route: 065
  3. NINTEDANIB [Concomitant]
     Active Substance: NINTEDANIB

REACTIONS (7)
  - Pain [Recovered/Resolved]
  - Anti-neutrophil cytoplasmic antibody positive vasculitis [Unknown]
  - Anaemia [Unknown]
  - Inflammatory marker increased [Unknown]
  - Lung diffusion test decreased [Unknown]
  - Forced expiratory volume decreased [Unknown]
  - Forced vital capacity decreased [Unknown]
